FAERS Safety Report 7864497-7 (Version None)
Quarter: 2011Q4

REPORT INFORMATION
  Report Type: 
  Country: None (occurrence: None)
  Receive Date: 20111028
  Receipt Date: 20111025
  Transmission Date: 20120403
  Serious: Yes (Other)
  Sender: FDA-Public Use
  Company Number: US-PFIZER INC-2011257236

PATIENT
  Sex: Female
  Weight: 65.76 kg

DRUGS (1)
  1. FLECTOR [Suspect]
     Indication: TENDONITIS
     Dosage: UNK, 2X/DAY
     Dates: start: 20111018, end: 20111021

REACTIONS (5)
  - DYSPNOEA [None]
  - SWELLING FACE [None]
  - HYPERSENSITIVITY [None]
  - FLUSHING [None]
  - NASAL CONGESTION [None]
